FAERS Safety Report 9028842 (Version 3)
Quarter: 2013Q2

REPORT INFORMATION
  Report Type: Spontaneous
  Country: US (occurrence: US)
  Receive Date: 20130124
  Receipt Date: 20130531
  Transmission Date: 20140414
  Serious: Yes (Death, Hospitalization)
  Sender: FDA-Public Use
  Company Number: US-B.I. PHARMACEUTICALS,INC./RIDGEFIELD-2013-BI-01787BP

PATIENT
  Age: 83 Year
  Sex: Male
  Weight: 72.57 kg

DRUGS (6)
  1. PRADAXA [Suspect]
     Indication: ANTICOAGULANT THERAPY
     Dosage: 300 MG
     Dates: start: 20110222, end: 20110509
  2. PRADAXA [Suspect]
     Indication: ATRIAL FIBRILLATION
  3. COUMADIN [Suspect]
     Dates: start: 20110510, end: 20110520
  4. RYTHMOL [Concomitant]
     Indication: ATRIAL FIBRILLATION
     Dosage: 450 MG
     Dates: start: 200902, end: 201106
  5. EYE DROPS [Concomitant]
  6. FISH OIL [Concomitant]
     Dosage: 2400 MG

REACTIONS (3)
  - Pneumonia [Fatal]
  - Pulmonary haemorrhage [Fatal]
  - Anaemia [Unknown]
